FAERS Safety Report 20845750 (Version 2)
Quarter: 2022Q2

REPORT INFORMATION
  Report Type: Spontaneous
  Country: CA (occurrence: CA)
  Receive Date: 20220518
  Receipt Date: 20220617
  Transmission Date: 20220720
  Serious: Yes (Hospitalization, Other)
  Sender: FDA-Public Use
  Company Number: CA-PFIZER INC-202200642908

PATIENT
  Age: 63 Year
  Sex: Male

DRUGS (4)
  1. RUXIENCE [Suspect]
     Active Substance: RITUXIMAB-PVVR
     Indication: Autoimmune haemolytic anaemia
     Dosage: 375 MG/M2 ONCE, NOT YET STARTED
  2. RUXIENCE [Suspect]
     Active Substance: RITUXIMAB-PVVR
     Dosage: 375 MG/M2 ONCE
     Route: 042
     Dates: start: 20220401
  3. RUXIENCE [Suspect]
     Active Substance: RITUXIMAB-PVVR
     Dosage: 375 MG/M2 ONCE
     Route: 042
     Dates: start: 20220407
  4. RUXIENCE [Suspect]
     Active Substance: RITUXIMAB-PVVR
     Dosage: 375 MG/M2 ONCE
     Route: 042
     Dates: start: 20220414

REACTIONS (4)
  - Haemoglobin decreased [Unknown]
  - Off label use [Unknown]
  - Off label use [Unknown]
  - Off label use [Unknown]

NARRATIVE: CASE EVENT DATE: 20220426
